FAERS Safety Report 14303991 (Version 1)
Quarter: 2017Q4

REPORT INFORMATION
  Report Type: Spontaneous
  Country: CH (occurrence: CH)
  Receive Date: 20171219
  Receipt Date: 20171219
  Transmission Date: 20180321
  Serious: Yes (Other)
  Sender: FDA-Public Use
  Company Number: CH-OTSUKA-DJ20072548

PATIENT
  Age: 24 Hour
  Sex: Male
  Weight: 2.9 kg

DRUGS (1)
  1. ABILIFY [Suspect]
     Active Substance: ARIPIPRAZOLE
     Indication: ACUTE PSYCHOSIS
     Dosage: 5 MG, QD
     Route: 064
     Dates: start: 200512

REACTIONS (3)
  - Renal disorder [Recovering/Resolving]
  - Foetal exposure during pregnancy [Recovered/Resolved]
  - Pyelocaliectasis [Recovering/Resolving]

NARRATIVE: CASE EVENT DATE: 20061011
